FAERS Safety Report 15049766 (Version 3)
Quarter: 2018Q3

REPORT INFORMATION
  Report Type: Spontaneous
  Country: US (occurrence: US)
  Receive Date: 20180622
  Receipt Date: 20180802
  Transmission Date: 20181010
  Serious: Yes (Other)
  Sender: FDA-Public Use
  Company Number: US-009507513-1806USA006945

PATIENT
  Age: 30 Year
  Sex: Female
  Weight: 68.93 kg

DRUGS (2)
  1. ZOLOFT [Concomitant]
     Active Substance: SERTRALINE HYDROCHLORIDE
     Indication: ANXIETY
     Dosage: 100 MG, QD
     Route: 048
     Dates: start: 20140929
  2. NEXPLANON [Suspect]
     Active Substance: ETONOGESTREL
     Indication: CONTRACEPTION
     Dosage: 1 UNIT, ONCE
     Route: 059
     Dates: start: 20180327

REACTIONS (12)
  - Abortion spontaneous [Recovering/Resolving]
  - Pelvic pain [Recovering/Resolving]
  - Vulvovaginal pain [Unknown]
  - Amenorrhoea [Unknown]
  - Drug administration error [Unknown]
  - Pregnancy with implant contraceptive [Recovered/Resolved]
  - Hydrometra [Unknown]
  - Vaginal haemorrhage [Recovering/Resolving]
  - Endometrial thickening [Unknown]
  - Breast tenderness [Unknown]
  - Unintended pregnancy [Recovered/Resolved]
  - Pain [Unknown]

NARRATIVE: CASE EVENT DATE: 2018
